FAERS Safety Report 4638929-1 (Version None)
Quarter: 2005Q2

REPORT INFORMATION
  Report Type: 
  Country: None (occurrence: None)
  Receive Date: 20050419
  Receipt Date: 20050408
  Transmission Date: 20051028
  Serious: Yes (Other)
  Sender: FDA-Public Use
  Company Number: CA-GLAXOSMITHKLINE-A0554063A

PATIENT
  Age: 30 Year
  Sex: Female

DRUGS (4)
  1. CLAVULIN [Suspect]
     Indication: DRUG USE FOR UNKNOWN INDICATION
     Dosage: 250MG THREE TIMES PER DAY
     Route: 048
  2. ZYBAN [Suspect]
     Indication: DRUG USE FOR UNKNOWN INDICATION
     Dosage: 150MG TWICE PER DAY
     Route: 048
  3. APO-SALVENT [Concomitant]
     Route: 055
  4. BECLOMETHASONE DIPROPIONATE [Concomitant]
     Route: 055

REACTIONS (6)
  - ERYTHEMA [None]
  - FIBROMYALGIA [None]
  - MUSCULOSKELETAL STIFFNESS [None]
  - MYALGIA [None]
  - PRURITUS [None]
  - WHEEZING [None]
